FAERS Safety Report 6711356-9 (Version None)
Quarter: 2010Q2

REPORT INFORMATION
  Report Type: 
  Country: None (occurrence: None)
  Receive Date: 20100505
  Receipt Date: 20100421
  Transmission Date: 20101027
  Serious: Yes (Hospitalization)
  Sender: FDA-Public Use
  Company Number: PL-ELI_LILLY_AND_COMPANY-PL201004008555

PATIENT
  Sex: Female
  Weight: 55.3 kg

DRUGS (7)
  1. PEMETREXED [Suspect]
     Indication: NON-SMALL CELL LUNG CANCER
     Dosage: 800 MG, OTHER
     Route: 042
     Dates: start: 20100416
  2. CISPLATIN [Suspect]
     Indication: NON-SMALL CELL LUNG CANCER
     Dosage: 120 MG, OTHER
     Route: 042
     Dates: start: 20100416
  3. FENTANYL CITRATE [Concomitant]
     Dates: start: 20100409
  4. ENARENAL [Concomitant]
  5. NYSTATIN [Concomitant]
     Indication: CANDIDIASIS
  6. ONDANSETRON [Concomitant]
     Indication: NAUSEA
     Dates: start: 20100417
  7. DEXAMETHASONE [Concomitant]
     Indication: NAUSEA
     Dates: start: 20100417

REACTIONS (3)
  - HOSPITALISATION [None]
  - NAUSEA [None]
  - VOMITING [None]
